FAERS Safety Report 23500636 (Version 5)
Quarter: 2024Q1

REPORT INFORMATION
  Report Type: Spontaneous
  Country: BR (occurrence: BR)
  Receive Date: 20240208
  Receipt Date: 20240318
  Transmission Date: 20240410
  Serious: Yes (Death, Life-Threatening, Hospitalization, Other)
  Sender: FDA-Public Use
  Company Number: BR-009507513-2402BRA002586

PATIENT
  Age: 58 Year
  Sex: Female

DRUGS (11)
  1. KEYTRUDA [Suspect]
     Active Substance: PEMBROLIZUMAB
     Indication: Breast cancer metastatic
     Dosage: 200 MG, CYCLE 1
     Dates: start: 20230918, end: 20230918
  2. KEYTRUDA [Suspect]
     Active Substance: PEMBROLIZUMAB
     Dosage: CYCLE 2
     Dates: start: 20231009, end: 20231009
  3. KEYTRUDA [Suspect]
     Active Substance: PEMBROLIZUMAB
     Dosage: CYCLE 3
     Dates: start: 20231030, end: 20231030
  4. KEYTRUDA [Suspect]
     Active Substance: PEMBROLIZUMAB
     Dosage: CYCLE 4
     Dates: start: 20231218, end: 20231218
  5. KEYTRUDA [Suspect]
     Active Substance: PEMBROLIZUMAB
     Dosage: CYCLE 5
     Dates: start: 20240108, end: 20240108
  6. ACETAMINOPHEN\CODEINE PHOSPHATE [Concomitant]
     Active Substance: ACETAMINOPHEN\CODEINE PHOSPHATE
  7. LACTULOSE [Concomitant]
     Active Substance: LACTULOSE
  8. DIPYRONE [Concomitant]
     Active Substance: DIPYRONE
  9. LOSARTAN [Concomitant]
     Active Substance: LOSARTAN
  10. VALPROIC ACID [Concomitant]
     Active Substance: VALPROIC ACID
  11. TAXOL [Concomitant]
     Active Substance: PACLITAXEL
     Indication: Breast cancer metastatic
     Dates: start: 20230731, end: 20231113

REACTIONS (24)
  - Immune-mediated lung disease [Not Recovered/Not Resolved]
  - Malignant neoplasm progression [Fatal]
  - Partial seizures with secondary generalisation [Recovered/Resolved]
  - Hypoxia [Recovered/Resolved]
  - Brain oedema [Recovered/Resolved]
  - Syncope [Recovered/Resolved]
  - Syncope [Recovered/Resolved]
  - Lymphangitis [Not Recovered/Not Resolved]
  - Dependence on oxygen therapy [Not Recovered/Not Resolved]
  - Unevaluable event [Unknown]
  - Oxygen saturation decreased [Not Recovered/Not Resolved]
  - Tachycardia [Recovered/Resolved]
  - Neutropenia [Not Recovered/Not Resolved]
  - Dyspnoea [Recovered/Resolved]
  - Cough [Recovered/Resolved]
  - Asthenia [Recovered/Resolved]
  - Myalgia [Recovered/Resolved]
  - Malaise [Recovered/Resolved]
  - Hypotension [Recovered/Resolved]
  - Dyspepsia [Recovered/Resolved]
  - Condition aggravated [Not Recovered/Not Resolved]
  - Agitation [Recovered/Resolved]
  - Nausea [Recovered/Resolved]
  - Inappropriate schedule of product administration [Unknown]

NARRATIVE: CASE EVENT DATE: 20231113
